FAERS Safety Report 19578693 (Version 1)
Quarter: 2021Q3

REPORT INFORMATION
  Report Type: Spontaneous
  Country: US (occurrence: US)
  Receive Date: 20210719
  Receipt Date: 20210719
  Transmission Date: 20211014
  Serious: Yes (Other)
  Sender: FDA-Public Use
  Company Number: US-TAKEDA-2021TUS044188

PATIENT
  Sex: Female

DRUGS (8)
  1. ACETAMINOPHEN. [Concomitant]
     Active Substance: ACETAMINOPHEN
     Dosage: UNK
     Route: 065
  2. NINLARO [Suspect]
     Active Substance: IXAZOMIB CITRATE
     Indication: PLASMA CELL MYELOMA
     Dosage: 3 MILLIGRAM, Q3WEEKS
     Route: 048
     Dates: start: 20210226
  3. PROCHLORPERAZINE. [Concomitant]
     Active Substance: PROCHLORPERAZINE
     Dosage: UNK
     Route: 065
  4. CEPHALEXIN. [Concomitant]
     Active Substance: CEPHALEXIN
     Dosage: UNK
     Route: 065
  5. LIPITOR [Concomitant]
     Active Substance: ATORVASTATIN CALCIUM
     Dosage: UNK
     Route: 065
  6. MULTIVITAMIN [Concomitant]
     Active Substance: VITAMINS
     Dosage: UNK
     Route: 065
  7. LOSARTAN. [Concomitant]
     Active Substance: LOSARTAN
     Dosage: UNK
     Route: 065
  8. VITAMIN D [Concomitant]
     Active Substance: VITAMIN D NOS
     Dosage: UNK
     Route: 065

REACTIONS (4)
  - Anaemia [Unknown]
  - Dehydration [Unknown]
  - Rash [Unknown]
  - Thrombocytopenia [Unknown]
